FAERS Safety Report 7266942-7 (Version None)
Quarter: 2011Q1

REPORT INFORMATION
  Report Type: 
  Country: None (occurrence: None)
  Receive Date: 20110201
  Receipt Date: 20110124
  Transmission Date: 20110831
  Serious: Yes (Other)
  Sender: FDA-Public Use
  Company Number: US-US-EMD SERONO, INC.-233489J09USA

PATIENT
  Sex: Female

DRUGS (3)
  1. UNSPECIFIED MEDICATION [Concomitant]
     Indication: PREMEDICATION
  2. UNSPECIFIED MEDICATIONS FOR DEPRESSION [Concomitant]
     Indication: DEPRESSION
  3. REBIF [Suspect]
     Indication: MULTIPLE SCLEROSIS
     Route: 058
     Dates: start: 20061110

REACTIONS (1)
  - PERNICIOUS ANAEMIA [None]
